FAERS Safety Report 8669796 (Version 3)
Quarter: 2013Q2

REPORT INFORMATION
  Report Type: Spontaneous
  Country: FI (occurrence: FI)
  Receive Date: 20120718
  Receipt Date: 20130517
  Transmission Date: 20140414
  Serious: Yes (Hospitalization)
  Sender: FDA-Public Use
  Company Number: FI-ELI_LILLY_AND_COMPANY-FI201207002902

PATIENT
  Age: 66 Year
  Sex: Female

DRUGS (2)
  1. FORSTEO [Suspect]
     Indication: OSTEOPOROSIS
     Dosage: 20 UG, QD
     Route: 058
     Dates: start: 20120502
  2. PREDNISON [Concomitant]
     Indication: RHEUMATIC DISORDER
     Dosage: UNK

REACTIONS (1)
  - Varicose ulceration [Recovered/Resolved]
